FAERS Safety Report 13398954 (Version 1)
Quarter: 2017Q2

REPORT INFORMATION
  Report Type: Other
  Country: DE (occurrence: DE)
  Receive Date: 20170404
  Receipt Date: 20170404
  Transmission Date: 20170830
  Serious: No
  Sender: FDA-Public Use
  Company Number: DE-LUPIN PHARMACEUTICALS INC.-2016-02511

PATIENT
  Age: 31 Year
  Sex: Female
  Weight: 53 kg

DRUGS (3)
  1. SERTRALINE [Suspect]
     Active Substance: SERTRALINE HYDROCHLORIDE
     Indication: PANIC DISORDER
     Dosage: 75 MG,UNK,
     Route: 048
     Dates: end: 20160105
  2. FEMIBION [Concomitant]
     Active Substance: VITAMINS
     Indication: PROPHYLAXIS OF NEURAL TUBE DEFECT
     Dosage: 8 MG,UNK,
     Route: 048
     Dates: start: 20150506, end: 20160105
  3. SERTRALINE [Suspect]
     Active Substance: SERTRALINE HYDROCHLORIDE
     Indication: DEPRESSION
     Dosage: 50 MG,UNK,
     Route: 048
     Dates: start: 20150407

REACTIONS (2)
  - Amniotic fluid volume decreased [Unknown]
  - Exposure during pregnancy [Unknown]
